FAERS Safety Report 8172762-1 (Version None)
Quarter: 2012Q1

REPORT INFORMATION
  Report Type: 
  Country: None (occurrence: None)
  Receive Date: 20120229
  Receipt Date: 20120214
  Transmission Date: 20120608
  Serious: No
  Sender: FDA-Public Use
  Company Number: US-JNJFOC-20120207457

PATIENT
  Sex: Female
  Weight: 57.61 kg

DRUGS (6)
  1. CITALOPRAM [Concomitant]
     Indication: ANXIETY
     Route: 065
     Dates: start: 20090101
  2. LISINOPRIL [Concomitant]
     Indication: BLOOD PRESSURE
     Route: 065
     Dates: start: 20080101
  3. LYRICA [Concomitant]
     Indication: NEURALGIA
     Route: 065
     Dates: start: 20110101
  4. DURAGESIC-100 [Suspect]
     Indication: SYRINGOMYELIA
     Route: 062
     Dates: start: 20110101
  5. HYDROCHLORTHIAZID [Concomitant]
     Indication: BLOOD PRESSURE
     Route: 065
     Dates: start: 20080101
  6. VICODIN [Concomitant]
     Indication: PAIN
     Route: 065
     Dates: start: 20100101

REACTIONS (3)
  - INAPPROPRIATE SCHEDULE OF DRUG ADMINISTRATION [None]
  - PRODUCT QUALITY ISSUE [None]
  - WRONG TECHNIQUE IN DRUG USAGE PROCESS [None]
